FAERS Safety Report 20469560 (Version 1)
Quarter: 2022Q1

REPORT INFORMATION
  Report Type: Report from Study
  Country: IN (occurrence: IN)
  Receive Date: 20220214
  Receipt Date: 20220214
  Transmission Date: 20220423
  Serious: Yes (Death)
  Sender: FDA-Public Use
  Company Number: IN-PFIZER INC-202200248728

PATIENT

DRUGS (1)
  1. GLASDEGIB [Suspect]
     Active Substance: GLASDEGIB

REACTIONS (1)
  - Death [Fatal]
